FAERS Safety Report 9009064 (Version 6)
Quarter: 2013Q3

REPORT INFORMATION
  Report Type: Report from Study
  Country: US (occurrence: US)
  Receive Date: 20130111
  Receipt Date: 20130709
  Transmission Date: 20140515
  Serious: Yes (Other)
  Sender: FDA-Public Use
  Company Number: US-VERTEX PHARMACEUTICALS INC.-2013-000446

PATIENT
  Age: 59 Year
  Sex: Male
  Weight: 73 kg

DRUGS (13)
  1. VX-950 (TELAPREVIR) [Suspect]
     Indication: HEPATITIS C
     Dosage: 2
     Route: 048
     Dates: start: 20121204, end: 20130305
  2. RIBAVIRIN [Suspect]
     Indication: HEPATITIS C
     Dosage: 1000 MG, QD
     Dates: start: 20121204
  3. PEGASYS [Suspect]
     Indication: HEPATITIS C
     Dosage: 180 ?G, QW
     Dates: start: 20121204
  4. VENLAFAXINE [Concomitant]
     Dosage: 75 MG, QD
     Dates: start: 20130124
  5. RIZATRIPTAN [Concomitant]
  6. ZOLPIDEM [Concomitant]
  7. NORTRIPTYLINE [Concomitant]
     Dosage: UNK, QD
     Route: 048
     Dates: start: 20130319
  8. CLOBETASOL [Concomitant]
  9. DESONIDE [Concomitant]
  10. ATARAX [Concomitant]
  11. MAXALT [Concomitant]
  12. AMBIEN [Concomitant]
  13. EFFEXOR [Concomitant]

REACTIONS (18)
  - Dermatitis [Recovered/Resolved]
  - Eczema [Recovered/Resolved]
  - Dehydration [Not Recovered/Not Resolved]
  - Insomnia [Not Recovered/Not Resolved]
  - Dandruff [Not Recovered/Not Resolved]
  - Alopecia [Not Recovered/Not Resolved]
  - Fibrosis [Unknown]
  - Cholelithiasis [Unknown]
  - Feeling abnormal [Not Recovered/Not Resolved]
  - Anxiety [Not Recovered/Not Resolved]
  - Neuropathy peripheral [Unknown]
  - Road traffic accident [Unknown]
  - White blood cell count decreased [Recovered/Resolved]
  - Off label use [Unknown]
  - Fatigue [Not Recovered/Not Resolved]
  - Pruritus [Not Recovered/Not Resolved]
  - Anaemia [Not Recovered/Not Resolved]
  - Platelet count decreased [Unknown]
